FAERS Safety Report 7178171-6 (Version None)
Quarter: 2010Q4

REPORT INFORMATION
  Report Type: 
  Country: None (occurrence: None)
  Receive Date: 20101220
  Receipt Date: 20101216
  Transmission Date: 20110411
  Serious: Yes (Hospitalization)
  Sender: FDA-Public Use
  Company Number: Z0006757A

PATIENT
  Sex: Male
  Weight: 82 kg

DRUGS (1)
  1. PAZOPANIB [Suspect]
     Indication: RENAL CELL CARCINOMA
     Dosage: 800MG PER DAY
     Route: 048
     Dates: start: 20100917

REACTIONS (3)
  - METASTASES TO SPINE [None]
  - PAIN IN EXTREMITY [None]
  - PARAPLEGIA [None]
